FAERS Safety Report 10504207 (Version 2)
Quarter: 2014Q4

REPORT INFORMATION
  Report Type: Spontaneous
  Country: US (occurrence: US)
  Receive Date: 20141008
  Receipt Date: 20141008
  Transmission Date: 20150528
  Serious: No
  Sender: FDA-Public Use
  Company Number: US-BEH-2014042806

PATIENT
  Age: 55 Year
  Sex: Female
  Weight: 74 kg

DRUGS (30)
  1. SOLU-MEDROL [Concomitant]
     Active Substance: METHYLPREDNISOLONE SODIUM SUCCINATE
  2. SINGULAIR [Concomitant]
     Active Substance: MONTELUKAST SODIUM
  3. FLUOXETINE [Concomitant]
     Active Substance: FLUOXETINE\FLUOXETINE HYDROCHLORIDE
  4. PRIVIGEN [Suspect]
     Active Substance: HUMAN IMMUNOGLOBULIN G
     Route: 042
  5. PRIVIGEN [Suspect]
     Active Substance: HUMAN IMMUNOGLOBULIN G
     Route: 042
  6. SEROQUEL [Concomitant]
     Active Substance: QUETIAPINE FUMARATE
  7. XANAX [Concomitant]
     Active Substance: ALPRAZOLAM
  8. MIACALCIN [Concomitant]
     Active Substance: CALCITONIN SALMON
  9. PRIVIGEN [Suspect]
     Active Substance: HUMAN IMMUNOGLOBULIN G
     Dosage: OVER 2-3 HOURS
     Route: 042
  10. SODIUM CHLORIDE. [Concomitant]
     Active Substance: SODIUM CHLORIDE
  11. TOPIRAMATE. [Concomitant]
     Active Substance: TOPIRAMATE
  12. IMIPRAMINE [Concomitant]
     Active Substance: IMIPRAMINE
  13. AMOXICILLIN. [Concomitant]
     Active Substance: AMOXICILLIN
  14. PHENTERMINE [Concomitant]
     Active Substance: PHENTERMINE
  15. DEXMETHYLPHENIDATE [Concomitant]
     Active Substance: DEXMETHYLPHENIDATE HYDROCHLORIDE
  16. PRIVIGEN [Suspect]
     Active Substance: HUMAN IMMUNOGLOBULIN G
     Indication: HODGKIN^S DISEASE
     Dosage: OVER 2-3 HOURS
     Route: 042
  17. PRIVIGEN [Suspect]
     Active Substance: HUMAN IMMUNOGLOBULIN G
     Route: 042
  18. DIPHENHYDRAMINE [Concomitant]
     Active Substance: DIPHENHYDRAMINE
  19. AZELASTINE [Concomitant]
     Active Substance: AZELASTINE
  20. PREDNISONE. [Concomitant]
     Active Substance: PREDNISONE
  21. EPIPEN [Concomitant]
     Active Substance: EPINEPHRINE
  22. ESTRADIOL. [Concomitant]
     Active Substance: ESTRADIOL
  23. LEVAQUIN [Concomitant]
     Active Substance: LEVOFLOXACIN
  24. DEPO-TESTADIOL [Concomitant]
     Active Substance: ESTRADIOL CYPIONATE\TESTOSTERONE CYPIONATE
  25. PRIVIGEN [Suspect]
     Active Substance: HUMAN IMMUNOGLOBULIN G
     Route: 042
  26. LMX [Concomitant]
     Active Substance: LIDOCAINE
  27. FLUTICASONE [Concomitant]
     Active Substance: FLUTICASONE\FLUTICASONE PROPIONATE
  28. LEXAPRO [Concomitant]
     Active Substance: ESCITALOPRAM OXALATE
  29. LEVAQUIN [Concomitant]
     Active Substance: LEVOFLOXACIN
  30. HEPARIN [Concomitant]
     Active Substance: HEPARIN SODIUM

REACTIONS (4)
  - Vomiting [Unknown]
  - Nausea [Unknown]
  - Headache [Unknown]
  - Sinusitis [Unknown]

NARRATIVE: CASE EVENT DATE: 201405
